FAERS Safety Report 9774723 (Version 1)
Quarter: 2013Q4

REPORT INFORMATION
  Report Type: Spontaneous
  Country: US (occurrence: US)
  Receive Date: 20131220
  Receipt Date: 20131220
  Transmission Date: 20140711
  Serious: Yes (Hospitalization)
  Sender: FDA-Public Use
  Company Number: US-NOVOPROD-395434

PATIENT
  Age: 60 Year
  Sex: Male
  Weight: 65 kg

DRUGS (4)
  1. NOVOLIN R [Suspect]
     Indication: TYPE 2 DIABETES MELLITUS
     Dosage: 657 UNITS 24 HRS
     Route: 042
  2. NOVOLIN R [Suspect]
     Dosage: 76 UNITS/ HOUR
     Route: 042
  3. INSULIN GLARGINE [Suspect]
     Indication: TYPE 2 DIABETES MELLITUS
     Dosage: 20 U, QD (AT BEDTIME)
     Route: 058
  4. REPAGLINIDE [Concomitant]
     Indication: TYPE 2 DIABETES MELLITUS
     Dosage: 1 MG, TID
     Route: 048

REACTIONS (1)
  - Insulin resistance [Recovered/Resolved]
